FAERS Safety Report 17238381 (Version 1)
Quarter: 2020Q1

REPORT INFORMATION
  Report Type: Spontaneous
  Country: CA (occurrence: CA)
  Receive Date: 20200106
  Receipt Date: 20200106
  Transmission Date: 20200409
  Serious: Yes (Hospitalization)
  Sender: FDA-Public Use
  Company Number: CA-NALPROPION PHARMACEUTICALS INC.-2019-009375

PATIENT

DRUGS (6)
  1. CONTRAVE [Suspect]
     Active Substance: BUPROPION HYDROCHLORIDE\NALTREXONE HYDROCHLORIDE
     Indication: WEIGHT CONTROL
     Dosage: EXTENDED RELEASE DOSE: 1 (UNITS UNSPECIFIED)
     Route: 048
  2. CONTRAVE [Interacting]
     Active Substance: BUPROPION HYDROCHLORIDE\NALTREXONE HYDROCHLORIDE
     Dosage: EXTENDED RELEASE DOSE: 2 (UNITS UNSPECIFIED)
     Route: 048
  3. CONTRAVE [Interacting]
     Active Substance: BUPROPION HYDROCHLORIDE\NALTREXONE HYDROCHLORIDE
     Dosage: EXTENDED RELEASE
     Route: 048
  4. CONTRAVE [Interacting]
     Active Substance: BUPROPION HYDROCHLORIDE\NALTREXONE HYDROCHLORIDE
     Dosage: EXTENDED RELEASE DOSE: 1 (UNITS UNSPECIFIED)
     Route: 048
  5. OZEMPIC [Interacting]
     Active Substance: SEMAGLUTIDE
     Indication: WEIGHT CONTROL
     Dosage: PREFILLED PEN DISPENSES 0.25MG OR 0.5MG DOSE
     Route: 058
  6. ASA [Concomitant]
     Active Substance: ASPIRIN
     Indication: PRODUCT USED FOR UNKNOWN INDICATION
     Dosage: UNK

REACTIONS (8)
  - Dehydration [Unknown]
  - Product use in unapproved indication [Unknown]
  - Drug interaction [Unknown]
  - Eating disorder [Unknown]
  - Malaise [Unknown]
  - Diarrhoea [Unknown]
  - Nausea [Unknown]
  - Nervousness [Unknown]
